FAERS Safety Report 19567096 (Version 1)
Quarter: 2021Q3

REPORT INFORMATION
  Report Type: Spontaneous
  Country: US (occurrence: US)
  Receive Date: 20210715
  Receipt Date: 20210715
  Transmission Date: 20211014
  Serious: No
  Sender: FDA-Public Use
  Company Number: US-MYLANLABS-2021M1038894

PATIENT
  Sex: Female
  Weight: 59 kg

DRUGS (1)
  1. LEVOTHYROXINE SODIUM TABLETS, USP [Suspect]
     Active Substance: LEVOTHYROXINE SODIUM
     Indication: HYPOTHYROIDISM
     Dosage: 50 MICROGRAM, QD (ONCE A DAY)
     Route: 048

REACTIONS (2)
  - Expired product administered [Recovering/Resolving]
  - Nervous system disorder [Recovering/Resolving]
